FAERS Safety Report 4800009-X (Version None)
Quarter: 2005Q4

REPORT INFORMATION
  Report Type: 
  Country: None (occurrence: None)
  Receive Date: 20051013
  Receipt Date: 20051004
  Transmission Date: 20060501
  Serious: Yes (Hospitalization)
  Sender: FDA-Public Use
  Company Number: 2005130590

PATIENT
  Age: 62 Year
  Sex: Male
  Weight: 67 kg

DRUGS (9)
  1. LYRICA [Suspect]
     Indication: NEURALGIA
     Dosage: 150MG AM, 150MG PM, 200MG NOCTE, ORAL
     Route: 048
     Dates: end: 20050920
  2. MORPHINE SULFATE [Concomitant]
  3. THYROXINE (LEVOTHYROXINE) [Concomitant]
  4. LOPERAMIDE HCL [Concomitant]
  5. TAMSULOSIN HCL [Concomitant]
  6. CO-PHENOTROPE (ATROPINE SULFATE, DIPHENOXYLATE HYDROCHLORIDE) [Concomitant]
  7. WARFARIN SODIUM [Concomitant]
  8. AMITRIPTYLINE HCL [Concomitant]
  9. CODEINE PHOSPHATE (CODEINE PHOSPHATE) [Concomitant]

REACTIONS (16)
  - ABNORMAL DREAMS [None]
  - APHASIA [None]
  - DRY MOUTH [None]
  - DYSKINESIA [None]
  - DYSPHEMIA [None]
  - FLATULENCE [None]
  - INCREASED APPETITE [None]
  - MEMORY IMPAIRMENT [None]
  - MENTAL IMPAIRMENT [None]
  - MOOD SWINGS [None]
  - MUSCLE TWITCHING [None]
  - OEDEMA PERIPHERAL [None]
  - RASH [None]
  - SPEECH DISORDER [None]
  - THIRST [None]
  - WEIGHT INCREASED [None]
